FAERS Safety Report 6645836-1 (Version None)
Quarter: 2010Q1

REPORT INFORMATION
  Report Type: 
  Country: None (occurrence: None)
  Receive Date: 20100318
  Receipt Date: 20100318
  Transmission Date: 20100710
  Serious: Yes (Other)
  Sender: FDA-Public Use
  Company Number: None

PATIENT
  Age: 82 Year
  Sex: Male
  Weight: 71.5 kg

DRUGS (1)
  1. ULTRAM [Suspect]
     Dosage: PO
     Route: 048

REACTIONS (1)
  - HALLUCINATION, VISUAL [None]
